FAERS Safety Report 5888383-7 (Version None)
Quarter: 2008Q3

REPORT INFORMATION
  Report Type: 
  Country: None (occurrence: None)
  Receive Date: 20080918
  Receipt Date: 20080911
  Transmission Date: 20090109
  Serious: Yes (Life-Threatening, Hospitalization)
  Sender: FDA-Public Use
  Company Number: IT-PFIZER INC-2008077013

PATIENT
  Sex: Female

DRUGS (6)
  1. ZOLOFT [Suspect]
     Indication: ANOREXIA
     Route: 048
     Dates: start: 20080820
  2. ZOLOFT [Suspect]
     Indication: BINGE EATING
  3. ZOLOFT [Suspect]
     Indication: PERSONALITY DISORDER
  4. ZYPREXA [Suspect]
     Indication: ANOREXIA
     Route: 048
     Dates: start: 20080820
  5. ZYPREXA [Suspect]
     Indication: BINGE EATING
  6. ZYPREXA [Suspect]
     Indication: PERSONALITY DISORDER

REACTIONS (4)
  - CARDIAC ARREST [None]
  - HYPOKALAEMIA [None]
  - SYNCOPE [None]
  - VOMITING [None]
